FAERS Safety Report 25553817 (Version 2)
Quarter: 2025Q4

REPORT INFORMATION
  Report Type: Other
  Country: EU (occurrence: EU)
  Receive Date: 20250715
  Receipt Date: 20251224
  Transmission Date: 20260118
  Serious: Yes (Hospitalization, Other)
  Sender: MACLEODS
  Company Number: EU-SANDOZ-SDZ2025DE036685

PATIENT

DRUGS (10)
  1. CELECOXIB [Suspect]
     Active Substance: CELECOXIB
     Indication: Prostatic specific antigen
     Dosage: 200 MG, 7 DAYS PER WEEK
     Route: 065
     Dates: start: 20070509
  2. COSENTYX [Suspect]
     Active Substance: SECUKINUMAB
     Indication: Prostatic specific antigen
     Dosage: 300 MG, ALL 4 WEEKS
     Route: 065
     Dates: start: 20200101
  3. COSENTYX [Suspect]
     Active Substance: SECUKINUMAB
     Dosage: 300 MG, ALL 4 WEEKS
     Route: 065
     Dates: start: 20180424
  4. CIMZIA [Suspect]
     Active Substance: CERTOLIZUMAB PEGOL
     Indication: Product used for unknown indication
     Dosage: 200 MG
     Route: 065
     Dates: start: 20171213
  5. CIMZIA [Suspect]
     Active Substance: CERTOLIZUMAB PEGOL
     Dosage: 300 MG
     Route: 065
     Dates: start: 20171213
  6. CHOLECALCIFEROL [Concomitant]
     Active Substance: CHOLECALCIFEROL
     Indication: Product used for unknown indication
     Route: 065
  7. METOPROLOL [Concomitant]
     Active Substance: METOPROLOL
     Indication: Product used for unknown indication
     Route: 065
  8. PREDNISOLONE SODIUM PHOSPHATE [Concomitant]
     Active Substance: PREDNISOLONE SODIUM PHOSPHATE
     Indication: Product used for unknown indication
     Route: 065
  9. PREGABALIN [Concomitant]
     Active Substance: PREGABALIN
     Indication: Product used for unknown indication
     Route: 065
  10. CALCIUM CARBONATE [Concomitant]
     Active Substance: CALCIUM CARBONATE
     Indication: Product used for unknown indication
     Route: 065

REACTIONS (3)
  - Ischaemic cerebral infarction [Unknown]
  - Transient ischaemic attack [Unknown]
  - Middle cerebral artery stroke [Unknown]

NARRATIVE: CASE EVENT DATE: 20240906
